FAERS Safety Report 4778459-X (Version None)
Quarter: 2005Q3

REPORT INFORMATION
  Report Type: 
  Country: None (occurrence: None)
  Receive Date: 20050926
  Receipt Date: 20050914
  Transmission Date: 20060218
  Serious: Yes (Hospitalization)
  Sender: FDA-Public Use
  Company Number: 2005AP04934

PATIENT
  Age: 29 Year
  Sex: Female

DRUGS (2)
  1. ZOLADEX [Suspect]
     Indication: ENDOMETRIOSIS
     Route: 058
  2. SUPPLEMENT [Concomitant]

REACTIONS (2)
  - ASPARTATE AMINOTRANSFERASE INCREASED [None]
  - HEPATIC FUNCTION ABNORMAL [None]
